FAERS Safety Report 6539804-8 (Version None)
Quarter: 2010Q1

REPORT INFORMATION
  Report Type: 
  Country: None (occurrence: None)
  Receive Date: 20100115
  Receipt Date: 20100104
  Transmission Date: 20100710
  Serious: Yes (Hospitalization, Disabling, Other)
  Sender: FDA-Public Use
  Company Number: US-PFIZER INC-001-0073-990282

PATIENT
  Sex: Female
  Weight: 49.887 kg

DRUGS (5)
  1. DILANTIN [Suspect]
     Indication: CONVULSION
     Dosage: 200 MG, 1X/DAY
     Route: 048
     Dates: start: 19930101
  2. DEPAKOTE [Suspect]
     Indication: CONVULSION
     Dates: end: 19970101
  3. ATIVAN [Concomitant]
     Dates: start: 19930101
  4. TRENTAL [Concomitant]
     Dates: start: 19940101
  5. ACETYLSALICYLIC ACID [Concomitant]
     Indication: PROPHYLAXIS
     Dosage: UNK

REACTIONS (17)
  - ANEURYSM [None]
  - BLOOD CALCIUM DECREASED [None]
  - BLOOD THYROID STIMULATING HORMONE INCREASED [None]
  - CEREBROVASCULAR ACCIDENT [None]
  - CONVULSION [None]
  - DRUG INEFFECTIVE [None]
  - GRAND MAL CONVULSION [None]
  - HEADACHE [None]
  - HYPERACUSIS [None]
  - NAUSEA [None]
  - PHOTOPHOBIA [None]
  - RESPIRATORY ARREST [None]
  - SOMNOLENCE [None]
  - STATUS EPILEPTICUS [None]
  - THYROIDECTOMY [None]
  - VOMITING [None]
  - WEIGHT DECREASED [None]
